FAERS Safety Report 6136339-1 (Version None)
Quarter: 2009Q1

REPORT INFORMATION
  Report Type: 
  Country: None (occurrence: None)
  Receive Date: 20090330
  Receipt Date: 20090324
  Transmission Date: 20090719
  Serious: Yes (Congenital Anomaly)
  Sender: FDA-Public Use
  Company Number: ES-ASTRAZENECA-2009AC00929

PATIENT
  Sex: Female

DRUGS (3)
  1. TAMOXIFEN CITRATE [Suspect]
     Dosage: MOTHER USED 20 MG/DAY UNTIL 26TH WEEK OF PREGNANCY
     Route: 064
  2. COCAINE [Suspect]
     Dosage: MOTHER INHALED COCAINE DURING FIRST 6 WEEKS OF PREGNANCY
     Route: 064
  3. MARIJUANA [Suspect]
     Dosage: MOTHER INHALED MARIJUANA DURING FIRST 6 WEEKS OF PREGNANCY
     Route: 064

REACTIONS (1)
  - OCULOAURICULOVERTEBRAL DYSPLASIA [None]
